FAERS Safety Report 24228273 (Version 1)
Quarter: 2024Q3

REPORT INFORMATION
  Report Type: Spontaneous
  Country: GB (occurrence: GB)
  Receive Date: 20240820
  Receipt Date: 20240820
  Transmission Date: 20241016
  Serious: Yes (Hospitalization, Other)
  Sender: TEVA
  Company Number: None

PATIENT
  Age: 62 Year
  Sex: Female

DRUGS (4)
  1. PREDNISOLONE [Suspect]
     Active Substance: PREDNISOLONE
     Route: 065
     Dates: start: 20240605, end: 20240612
  2. MESALAMINE [Concomitant]
     Active Substance: MESALAMINE
  3. MIRTAZAPINE [Concomitant]
     Active Substance: MIRTAZAPINE
  4. AMLODIPINE [Concomitant]
     Active Substance: AMLODIPINE BESYLATE

REACTIONS (1)
  - Psychotic disorder [Recovering/Resolving]

NARRATIVE: CASE EVENT DATE: 20240807
